FAERS Safety Report 6676824-7 (Version None)
Quarter: 2010Q1

REPORT INFORMATION
  Report Type: 
  Country: None (occurrence: None)
  Receive Date: 20100331
  Receipt Date: 20100317
  Transmission Date: 20100710
  Serious: No
  Sender: FDA-Public Use
  Company Number: 2010-00341

PATIENT
  Age: 86 Year
  Sex: Male
  Weight: 68.9467 kg

DRUGS (3)
  1. ZICAM COLD REMEDY PLUS SORE THROAT RELIEF: LIQUI-LOZ [Suspect]
     Dosage: Q3 HRS - 5 DAYS
     Dates: start: 20100305, end: 20100310
  2. LISINOPRIL [Concomitant]
  3. MULTI-VITAMIN [Concomitant]

REACTIONS (1)
  - AGEUSIA [None]
